FAERS Safety Report 14282941 (Version 3)
Quarter: 2018Q4

REPORT INFORMATION
  Report Type: Spontaneous
  Country: RO (occurrence: RO)
  Receive Date: 20171213
  Receipt Date: 20181101
  Transmission Date: 20190204
  Serious: Yes (Other)
  Sender: FDA-Public Use
  Company Number: RO-MYLANLABS-2017M1078356

PATIENT
  Age: 29 Year
  Sex: Female

DRUGS (10)
  1. BETASERC [Suspect]
     Active Substance: BETAHISTINE
     Indication: DIZZINESS
     Dosage: UNK
     Route: 065
  2. CIPRINOL [Suspect]
     Active Substance: CIPROFLOXACIN
     Indication: STAPHYLOCOCCAL INFECTION
     Dosage: UNK
     Route: 065
  3. NORVASC [Concomitant]
     Active Substance: AMLODIPINE BESYLATE
     Indication: HYPERTENSION
     Dosage: UNK
     Route: 065
  4. OXACILLIN [Suspect]
     Active Substance: OXACILLIN SODIUM
     Dosage: 500 MG, 12 HOUR,  Q12H
     Route: 065
  5. CAVINTON [Suspect]
     Active Substance: VINPOCETINE
     Indication: DIZZINESS
     Dosage: UNK
     Route: 065
  6. GENTAMICIN. [Suspect]
     Active Substance: GENTAMICIN
     Indication: STAPHYLOCOCCAL INFECTION
     Dosage: 40 MG, DAILY
     Route: 065
  7. GENTAMICIN. [Suspect]
     Active Substance: GENTAMICIN
     Dosage: 80 MG, DAILY
     Route: 065
  8. GENTAMICIN. [Suspect]
     Active Substance: GENTAMICIN
     Dosage: UNK
  9. OXACILLIN [Suspect]
     Active Substance: OXACILLIN SODIUM
     Indication: STAPHYLOCOCCAL INFECTION
     Dosage: 250 MG, EVERY 12 HOURS (500 MG)
     Route: 065
  10. STUGERON [Suspect]
     Active Substance: CINNARIZINE
     Indication: DIZZINESS
     Dosage: UNK
     Route: 065

REACTIONS (2)
  - Dizziness [Not Recovered/Not Resolved]
  - Drug ineffective [Unknown]
